FAERS Safety Report 11744811 (Version 1)
Quarter: 2015Q4

REPORT INFORMATION
  Report Type: Report from Study
  Country: US (occurrence: US)
  Receive Date: 20151116
  Receipt Date: 20151116
  Transmission Date: 20160304
  Serious: Yes (Other)
  Sender: FDA-Public Use
  Company Number: US-AMGEN-USASL2015119305

PATIENT
  Sex: Female

DRUGS (1)
  1. ENBREL [Suspect]
     Active Substance: ETANERCEPT
     Indication: RHEUMATOID ARTHRITIS
     Dosage: UNK UNK, UNK
     Route: 065
     Dates: end: 2015

REACTIONS (7)
  - Rheumatoid arthritis [Unknown]
  - Feeling abnormal [Unknown]
  - Malaise [Unknown]
  - Muscle spasms [Unknown]
  - Drug ineffective [Unknown]
  - Device failure [Unknown]
  - Drug tolerance [Unknown]

NARRATIVE: CASE EVENT DATE: 2015
